FAERS Safety Report 6887901-X (Version None)
Quarter: 2010Q3

REPORT INFORMATION
  Report Type: 
  Country: None (occurrence: None)
  Receive Date: 20100726
  Receipt Date: 20100713
  Transmission Date: 20110219
  Serious: Yes (Other)
  Sender: FDA-Public Use
  Company Number: 2010SP039071

PATIENT
  Age: 42 Year
  Sex: Female
  Weight: 58 kg

DRUGS (3)
  1. CERAZETTE (DESOGESTREL /00754001/) [Suspect]
     Indication: PREMENSTRUAL SYNDROME
     Dosage: PO
     Route: 048
     Dates: start: 20100301
  2. NEOZINE (LEVOMEPROMAZINE) (LEVOMEPROMAZINE) [Suspect]
     Indication: SCHIZOPHRENIA
     Dosage: BID
     Dates: start: 20100201
  3. SULPIRIDE (SULPIRIDE) [Suspect]
     Indication: SCHIZOPHRENIA
     Dosage: 200 MG
     Dates: start: 20100201

REACTIONS (7)
  - AGGRESSION [None]
  - DELUSION [None]
  - DRUG INTERACTION [None]
  - OFF LABEL USE [None]
  - PARATHYROID TUMOUR [None]
  - THERAPEUTIC RESPONSE UNEXPECTED [None]
  - URINE CALCIUM INCREASED [None]
